FAERS Safety Report 22093875 (Version 1)
Quarter: 2023Q1

REPORT INFORMATION
  Report Type: Spontaneous
  Country: ES (occurrence: ES)
  Receive Date: 20230314
  Receipt Date: 20230314
  Transmission Date: 20230417
  Serious: Yes (Other)
  Sender: FDA-Public Use
  Company Number: None

PATIENT
  Age: 98 Year
  Sex: Female

DRUGS (7)
  1. IBUPROFEN [Suspect]
     Active Substance: IBUPROFEN
     Indication: Arthralgia
     Dosage: TID, TABLET BEFORE BREAKFAST, LUNCH, DINNER
     Route: 048
     Dates: start: 20190225, end: 20230224
  2. FUROSEMIDE [Concomitant]
     Active Substance: FUROSEMIDE
     Indication: Essential hypertension
     Dosage: 20 MILLIGRAM, QD 20.0 MG BREAKFAST, 30 TABLETS
     Route: 048
     Dates: start: 20160623
  3. DIOVAN [Concomitant]
     Active Substance: VALSARTAN
     Indication: Essential hypertension
     Dosage: 320MG, QD, 320.0 MG BEFORE BREAKFAST, 28 TABLET
     Route: 048
     Dates: start: 20100616
  4. OLOPATADINE [Concomitant]
     Active Substance: OLOPATADINE
     Indication: Conjunctivitis allergic
     Dosage: BID, 6.0DROPS EVERY 12HR, SOLUTION 1 BOTTLE OF 5ML
     Dates: start: 20130903
  5. BISOPROLOL [Concomitant]
     Active Substance: BISOPROLOL
     Indication: Essential hypertension
     Dosage: 1.25MG, BID, 1.25 MG BREAKFAST LUNCH, 20 TABLETS
     Route: 048
     Dates: start: 20171202
  6. OMEPRAZOLE [Concomitant]
     Active Substance: OMEPRAZOLE
     Indication: Dyspepsia
     Dosage: 20MG, QD, 20.0 MG BEFORE BREAKFAST, 28 TABLETS
     Route: 048
     Dates: start: 20170823
  7. ZALDIAR [Concomitant]
     Active Substance: ACETAMINOPHEN\TRAMADOL HYDROCHLORIDE
     Indication: Osteoarthritis
     Dosage: TID, 37.5 MG/325 MG, 2.0 BREAKFAST, LUNCH, DINNER
     Route: 048
     Dates: start: 20190326

REACTIONS (1)
  - Renal impairment [Not Recovered/Not Resolved]

NARRATIVE: CASE EVENT DATE: 20230224
